FAERS Safety Report 10262466 (Version 3)
Quarter: 2014Q4

REPORT INFORMATION
  Report Type: Report from Study
  Country: JP (occurrence: JP)
  Receive Date: 20140626
  Receipt Date: 20141028
  Transmission Date: 20150528
  Serious: Yes (Other)
  Sender: FDA-Public Use
  Company Number: PHHY2014JP078668

PATIENT
  Age: 54 Year
  Sex: Male

DRUGS (8)
  1. MEVALOTIN [Suspect]
     Active Substance: PRAVASTATIN SODIUM
     Dosage: 5 MG, DAILY
     Route: 048
     Dates: start: 20121122, end: 20130905
  2. AMN107 [Suspect]
     Active Substance: NILOTINIB
     Indication: CHRONIC MYELOID LEUKAEMIA
     Dosage: 400 MG, BID
     Dates: start: 20110512, end: 20110525
  3. AMN107 [Suspect]
     Active Substance: NILOTINIB
     Dosage: 400 MG, QD
     Route: 048
     Dates: start: 20110602, end: 20110630
  4. MEVALOTIN [Suspect]
     Active Substance: PRAVASTATIN SODIUM
     Indication: HYPERLIPIDAEMIA
     Dosage: 5 MG, DAILY
     Route: 048
     Dates: start: 20120309, end: 20120817
  5. PARIET [Concomitant]
     Active Substance: RABEPRAZOLE SODIUM
     Indication: PROPHYLAXIS
     Dosage: 10 MG
     Route: 048
     Dates: start: 20110602
  6. AMN107 [Suspect]
     Active Substance: NILOTINIB
     Dosage: 300 MG, BID
     Route: 048
     Dates: start: 20110701
  7. MEVALOTIN [Suspect]
     Active Substance: PRAVASTATIN SODIUM
     Dosage: 10 MG, DAILY
     Route: 048
     Dates: start: 20130906, end: 20140306
  8. MEVALOTIN [Suspect]
     Active Substance: PRAVASTATIN SODIUM
     Dosage: 10 MG, DAILY
     Dates: start: 20140606

REACTIONS (7)
  - Hypogonadism [Unknown]
  - Blood creatine phosphokinase increased [Recovered/Resolved]
  - Hyperlipidaemia [Not Recovered/Not Resolved]
  - Chest discomfort [Recovered/Resolved]
  - Alanine aminotransferase increased [Unknown]
  - Constipation [Not Recovered/Not Resolved]
  - Rash [Recovering/Resolving]

NARRATIVE: CASE EVENT DATE: 20110516
